FAERS Safety Report 4712501-7 (Version None)
Quarter: 2005Q3

REPORT INFORMATION
  Report Type: 
  Country: None (occurrence: None)
  Receive Date: 20050711
  Receipt Date: 20050629
  Transmission Date: 20060218
  Serious: Yes (Hospitalization)
  Sender: FDA-Public Use
  Company Number: US015541

PATIENT
  Sex: Male

DRUGS (1)
  1. PROVIGIL [Suspect]
     Dosage: 200 MG QD ORAL
     Route: 048

REACTIONS (2)
  - TACHYCARDIA [None]
  - THROMBOSIS [None]
